FAERS Safety Report 6347612-6 (Version None)
Quarter: 2009Q3

REPORT INFORMATION
  Report Type: 
  Country: None (occurrence: None)
  Receive Date: 20090910
  Receipt Date: 20090812
  Transmission Date: 20100115
  Serious: No
  Sender: FDA-Public Use
  Company Number: US-BAYER-200913450BCC

PATIENT
  Age: 71 Year
  Sex: Female
  Weight: 68 kg

DRUGS (2)
  1. ALEVE (CAPLET) [Suspect]
     Indication: MYALGIA
     Route: 048
     Dates: start: 20090601
  2. HORMONE CREAM [Concomitant]
     Dosage: COMPOUND THAT HAS TO BE MIXED
     Route: 065

REACTIONS (1)
  - INSOMNIA [None]
